FAERS Safety Report 4981551-8 (Version None)
Quarter: 2006Q2

REPORT INFORMATION
  Report Type: 
  Country: None (occurrence: None)
  Receive Date: 20060419
  Receipt Date: 20060329
  Transmission Date: 20061013
  Serious: Yes (Hospitalization)
  Sender: FDA-Public Use
  Company Number: US200603006929

PATIENT
  Age: 78 Year
  Sex: Female

DRUGS (2)
  1. FORTEO [Suspect]
     Indication: OSTEOPOROSIS
     Dates: start: 20050501
  2. FORTEO [Concomitant]

REACTIONS (7)
  - ARTHRITIS [None]
  - BACK PAIN [None]
  - BILIARY COLIC [None]
  - BONE PAIN [None]
  - CONDITION AGGRAVATED [None]
  - HAND DEFORMITY [None]
  - PANCREATIC DISORDER [None]
